FAERS Safety Report 15889773 (Version 1)
Quarter: 2019Q1

REPORT INFORMATION
  Report Type: Spontaneous
  Country: JP (occurrence: JP)
  Receive Date: 20190130
  Receipt Date: 20190130
  Transmission Date: 20190417
  Serious: Yes (Hospitalization, Other)
  Sender: FDA-Public Use
  Company Number: JP-GLAXOSMITHKLINE-JP2019JPN014630

PATIENT
  Age: 80 Year
  Sex: Male

DRUGS (1)
  1. AVOLVE [Suspect]
     Active Substance: DUTASTERIDE
     Indication: BENIGN PROSTATIC HYPERPLASIA
     Dosage: UNK
     Route: 048
     Dates: start: 2017

REACTIONS (5)
  - Gastric cancer recurrent [Unknown]
  - Therapy cessation [Unknown]
  - Gastric haemorrhage [Recovered/Resolved]
  - Product quality issue [Unknown]
  - Larynx irritation [Unknown]
